FAERS Safety Report 7361605-1 (Version None)
Quarter: 2011Q1

REPORT INFORMATION
  Report Type: 
  Country: None (occurrence: None)
  Receive Date: 20110318
  Receipt Date: 20110309
  Transmission Date: 20110831
  Serious: Yes (Other)
  Sender: FDA-Public Use
  Company Number: AU-JNJFOC-20101209154

PATIENT
  Sex: Female

DRUGS (14)
  1. GLYCERYL TRINITRATE [Concomitant]
  2. INDAPAMIDE [Concomitant]
  3. ASPIRIN [Concomitant]
  4. ESOMEPRAZOLE MAGNESIUM [Concomitant]
  5. RAMIPRIL [Concomitant]
  6. ETANERCEPT [Concomitant]
  7. ESTROGENIC SUBSTANCE [Concomitant]
  8. STELARA [Suspect]
     Route: 058
  9. ATENOLOL [Concomitant]
  10. CLOPIDOGREL [Concomitant]
  11. CANDESARTAN [Concomitant]
  12. MEDROXYPROGESTERONE [Concomitant]
  13. ROSUVASTATIN [Concomitant]
  14. STELARA [Suspect]
     Indication: PRODUCT USED FOR UNKNOWN INDICATION
     Route: 058

REACTIONS (3)
  - PERIPHERAL VASCULAR DISORDER [None]
  - CELLULITIS [None]
  - ARTHRITIS [None]
